FAERS Safety Report 5838534-5 (Version None)
Quarter: 2008Q3

REPORT INFORMATION
  Report Type: 
  Country: None (occurrence: None)
  Receive Date: 20080806
  Receipt Date: 20080729
  Transmission Date: 20090109
  Serious: Yes (Death)
  Sender: FDA-Public Use
  Company Number: 163-21880-07101334

PATIENT
  Age: 77 Year
  Sex: Male

DRUGS (3)
  1. REVLIMID [Suspect]
     Indication: MULTIPLE MYELOMA
     Dosage: 25 MG, 1 IN 1 D, ORAL; 5 MG, X21 DAYS EVERY 28 DAYS, ORAL, 25 MG, X21 DAYS EVERY 28 DAYS, ORAL
     Route: 048
     Dates: start: 20060828, end: 20061101
  2. REVLIMID [Suspect]
     Indication: MULTIPLE MYELOMA
     Dosage: 25 MG, 1 IN 1 D, ORAL; 5 MG, X21 DAYS EVERY 28 DAYS, ORAL, 25 MG, X21 DAYS EVERY 28 DAYS, ORAL
     Route: 048
     Dates: start: 20070418, end: 20070501
  3. REVLIMID [Suspect]
     Indication: MULTIPLE MYELOMA
     Dosage: 25 MG, 1 IN 1 D, ORAL; 5 MG, X21 DAYS EVERY 28 DAYS, ORAL, 25 MG, X21 DAYS EVERY 28 DAYS, ORAL
     Route: 048
     Dates: start: 20070604, end: 20070701

REACTIONS (4)
  - BLOOD COUNT ABNORMAL [None]
  - DISEASE PROGRESSION [None]
  - MULTIPLE MYELOMA [None]
  - NEUROPATHY PERIPHERAL [None]
